FAERS Safety Report 14962289 (Version 1)
Quarter: 2018Q2

REPORT INFORMATION
  Report Type: Spontaneous
  Country: FR (occurrence: FR)
  Receive Date: 20180601
  Receipt Date: 20180601
  Transmission Date: 20180711
  Serious: Yes (Hospitalization)
  Sender: FDA-Public Use
  Company Number: FR-TEVA-2018-FR-899361

PATIENT
  Age: 83 Year
  Sex: Female
  Weight: 81 kg

DRUGS (9)
  1. AMOXICILLINE [Suspect]
     Active Substance: AMOXICILLIN
     Dosage: 12 GRAM DAILY;
     Route: 048
     Dates: start: 20180119, end: 20180206
  2. DALACINE [Concomitant]
     Active Substance: CLINDAMYCIN HYDROCHLORIDE
     Dosage: 2.4 GRAM DAILY;
     Route: 048
     Dates: start: 20180124, end: 20180131
  3. GENTAMICINE [Concomitant]
     Active Substance: GENTAMICIN
     Dosage: 250 MILLIGRAM DAILY;
     Route: 048
     Dates: start: 20180119, end: 20180123
  4. PAROXETINE (CHLORHYDRATE DE) ANHYDRE [Concomitant]
     Active Substance: PAROXETINE
  5. HYZAAR [Concomitant]
     Active Substance: HYDROCHLOROTHIAZIDE\LOSARTAN POTASSIUM
     Route: 048
  6. TAMOXIFENE (CITRATE DE) [Concomitant]
     Active Substance: TAMOXIFEN CITRATE
     Route: 048
  7. KARDEGIC [Concomitant]
     Active Substance: ASPIRIN DL-LYSINE
     Route: 048
  8. NOVOMIX [Concomitant]
     Active Substance: INSULIN ASPART
     Route: 058
  9. AMOXICILLINE [Suspect]
     Active Substance: AMOXICILLIN
     Dosage: 2 GRAM DAILY;
     Route: 048
     Dates: start: 20180206, end: 20180209

REACTIONS (1)
  - Acute kidney injury [Recovered/Resolved]

NARRATIVE: CASE EVENT DATE: 20180204
